FAERS Safety Report 21302139 (Version 1)
Quarter: 2022Q3

REPORT INFORMATION
  Report Type: Spontaneous
  Country: CN (occurrence: None)
  Receive Date: 20220907
  Receipt Date: 20220907
  Transmission Date: 20221027
  Serious: Yes (Other)
  Sender: FDA-Public Use
  Company Number: CN-ROCHE-3175112

PATIENT
  Age: 45 Year
  Sex: Female

DRUGS (20)
  1. AVASTIN [Suspect]
     Active Substance: BEVACIZUMAB
     Indication: Ovarian cancer
     Dosage: 14-AUG-2020,04-SEP-2020,25-SEP-2020,16-OCT-2020,16-NOV-2020
     Route: 042
     Dates: start: 20200814
  2. AVASTIN [Suspect]
     Active Substance: BEVACIZUMAB
     Dosage: 19-JAN-2022,09-FEB-2022
     Route: 042
  3. AVASTIN [Suspect]
     Active Substance: BEVACIZUMAB
     Dosage: COMBINATION WITH OLAPARIB
     Route: 042
  4. CARBOPLATIN [Concomitant]
     Active Substance: CARBOPLATIN
     Indication: Ovarian cancer
     Dosage: 23-OCT-2014,13-NOV-2014,04-DEC-2014,25-DEC-2014,15-JAN-2015,05-FEB-2015,26-FEB-2015
     Route: 042
  5. CARBOPLATIN [Concomitant]
     Active Substance: CARBOPLATIN
     Dosage: 28-MAR-2017,18-APR-2017,09-MAY-2017,30-MAY-2017,20-JUN-2017,11-JUL-2017,01-AUG-2017
     Route: 042
  6. CARBOPLATIN [Concomitant]
     Active Substance: CARBOPLATIN
     Dosage: 11-MAY-2018,01-JUN-2018,22-JUN-2018,13-JUL-2018,03-AUG-2018,24-AUG-2018,14-SEP-2018
     Route: 042
  7. CARBOPLATIN [Concomitant]
     Active Substance: CARBOPLATIN
     Dosage: 05-SEP-2019,26-SEP-2019,17-OCT-2019,07-NOV-2019,28-NOV-2019,19-DEC-2019
     Route: 042
  8. CARBOPLATIN [Concomitant]
     Active Substance: CARBOPLATIN
     Dosage: 4-AUG-2020,04-SEP-2020,25-SEP-2020,16-OCT-2020,6-NOV-2020
     Route: 042
  9. CARBOPLATIN [Concomitant]
     Active Substance: CARBOPLATIN
     Dosage: 19-JAN-2022,09-FEB-2022
     Route: 042
  10. PACLITAXEL [Concomitant]
     Active Substance: PACLITAXEL
     Indication: Ovarian cancer
     Dosage: 23-OCT-2014,13-NOV-2014,04-DEC-2014,25-DEC-2014,15-JAN-2015,05-FEB-2015,26-FEB-2015
     Route: 042
  11. PACLITAXEL [Concomitant]
     Active Substance: PACLITAXEL
     Dosage: 28-MAR-2017,18-APR-2017,09-MAY-2017,30-MAY-2017,20-JUN-2017,11-JUL-2017,01-AUG-2017
     Route: 042
  12. PACLITAXEL [Concomitant]
     Active Substance: PACLITAXEL
     Dosage: 11-MAY-2018,01-JUN-2018,22-JUN-2018,13-JUL-2018,03-AUG-2018,24-AUG-2018,14-SEP-2018
     Route: 042
  13. PACLITAXEL [Concomitant]
     Active Substance: PACLITAXEL
     Dosage: 05-SEP-2019,26-SEP-2019,17-OCT-2019,07-NOV-2019,28-NOV-2019,19-DEC-2019
     Route: 042
  14. PACLITAXEL [Concomitant]
     Active Substance: PACLITAXEL
     Dosage: 14-AUG-2020,04-SEP-2020,25-SEP-2020,16-OCT-2020,6-NOV-2020
     Route: 042
  15. PACLITAXEL [Concomitant]
     Active Substance: PACLITAXEL
     Dosage: 19-JAN-2022,09-FEB-2022
     Route: 042
  16. OLAPARIB [Concomitant]
     Active Substance: OLAPARIB
     Indication: Ovarian cancer
     Dates: start: 20201214
  17. OLAPARIB [Concomitant]
     Active Substance: OLAPARIB
     Dosage: COMBINATION WITH BEVACIZUMAB
  18. TOLTERODINE TARTRATE [Concomitant]
     Active Substance: TOLTERODINE TARTRATE
     Indication: Urinary tract disorder
  19. DOCETAXEL [Concomitant]
     Active Substance: DOCETAXEL
     Indication: Product used for unknown indication
     Dates: start: 20211220
  20. CISPLATIN [Concomitant]
     Active Substance: CISPLATIN
     Indication: Product used for unknown indication
     Dates: start: 20211220

REACTIONS (2)
  - Urogenital fistula [Recovered/Resolved]
  - Off label use [Unknown]

NARRATIVE: CASE EVENT DATE: 20220223
